FAERS Safety Report 20544835 (Version 3)
Quarter: 2022Q2

REPORT INFORMATION
  Report Type: Spontaneous
  Country: US (occurrence: US)
  Receive Date: 20220303
  Receipt Date: 20220513
  Transmission Date: 20220721
  Serious: Yes (Other)
  Sender: FDA-Public Use
  Company Number: US-CELLTRION INC.-2022US002345

PATIENT

DRUGS (1)
  1. TRUXIMA [Suspect]
     Active Substance: RITUXIMAB-ABBS
     Indication: Dermatomyositis
     Dosage: 1000 MG, DAY 1 AND 15 REPEAT Q 6 MONTHS
     Route: 042
     Dates: start: 20220301

REACTIONS (2)
  - Dermatomyositis [Unknown]
  - Off label use [Unknown]
